FAERS Safety Report 4645492-8 (Version None)
Quarter: 2005Q2

REPORT INFORMATION
  Report Type: 
  Country: None (occurrence: None)
  Receive Date: 20050331
  Receipt Date: 20050207
  Transmission Date: 20051028
  Serious: Yes (Hospitalization)
  Sender: FDA-Public Use
  Company Number: 05P-163-0289742-00

PATIENT
  Age: 59 Year
  Sex: Female
  Weight: 54.4316 kg

DRUGS (6)
  1. HUMIRA [Suspect]
     Indication: RHEUMATOID ARTHRITIS
     Dosage: 40 MG, 1 IN 2 WK, SUBCUTANEOUS
     Route: 058
     Dates: start: 20040801, end: 20050114
  2. PREDNISONE TAB [Concomitant]
  3. VERAPAMIL [Concomitant]
  4. CYPROHEPTADINE HYDROCHLORIDE [Concomitant]
  5. ACTOS [Concomitant]
  6. THYROID PILL [Concomitant]

REACTIONS (5)
  - CHEST PAIN [None]
  - DYSPNOEA [None]
  - HEPATIC ENZYME INCREASED [None]
  - MYCOBACTERIUM AVIUM COMPLEX INFECTION [None]
  - RHEUMATOID ARTHRITIS [None]
